FAERS Safety Report 14245148 (Version 2)
Quarter: 2018Q1

REPORT INFORMATION
  Report Type: Spontaneous
  Country: JP (occurrence: JP)
  Receive Date: 20171202
  Receipt Date: 20180103
  Transmission Date: 20180508
  Serious: Yes (Death, Life-Threatening, Hospitalization, Other)
  Sender: FDA-Public Use
  Company Number: JP-SUN PHARMACEUTICAL INDUSTRIES LTD-2017R1-155502

PATIENT
  Age: 53 Year
  Sex: Male

DRUGS (2)
  1. PREDNISOLONE. [Concomitant]
     Active Substance: PREDNISOLONE
     Indication: RHEUMATOID ARTHRITIS
     Dosage: 2 MG, QD, LOW-DOSE
     Route: 065
  2. METHOTREXATE. [Suspect]
     Active Substance: METHOTREXATE
     Indication: RHEUMATOID ARTHRITIS
     Dosage: 10 MG, 1/WEEK
     Route: 048

REACTIONS (8)
  - Disseminated intravascular coagulation [Not Recovered/Not Resolved]
  - Acute kidney injury [Unknown]
  - Acute respiratory distress syndrome [Not Recovered/Not Resolved]
  - Pancytopenia [Unknown]
  - Bacterial sepsis [Fatal]
  - Brain herniation [Unknown]
  - Capnocytophaga infection [Fatal]
  - Cerebral haemorrhage [Unknown]
